FAERS Safety Report 4681635-8 (Version None)
Quarter: 2005Q2

REPORT INFORMATION
  Report Type: 
  Country: None (occurrence: None)
  Receive Date: 20050602
  Receipt Date: 20050517
  Transmission Date: 20051028
  Serious: Yes (Other)
  Sender: FDA-Public Use
  Company Number: US96100586A

PATIENT
  Age: 77 Year
  Sex: Female
  Weight: 58 kg

DRUGS (18)
  1. HUMALOG [Suspect]
     Indication: DIABETES MELLITUS
     Dates: start: 19980101
  2. HUMULIN L [Suspect]
     Indication: DIABETES MELLITUS
  3. HUMULIN R [Suspect]
     Indication: DIABETES MELLITUS INSULIN-DEPENDENT
     Dosage: 17 U
  4. HUMULIN U [Suspect]
     Indication: DIABETES MELLITUS INSULIN-DEPENDENT
     Dosage: 12 U
     Dates: end: 19990101
  5. HUMULIN N [Suspect]
     Indication: DIABETES MELLITUS
     Dosage: 10 U/1 AT BEDTIME
     Dates: start: 19990101
  6. HUMULIN-HUMAN  INSULIN (RDNA) (HU [Suspect]
     Indication: DIABETES MELLITUS
     Dates: start: 19800101
  7. ILETIN [Suspect]
     Indication: DIABETES MELLITUS
     Dates: start: 19570101, end: 19900101
  8. FORTEO [Suspect]
     Indication: OSTEOPOROSIS
     Dates: start: 20050320
  9. CYMBALTA [Suspect]
     Indication: DEPRESSION
     Dosage: 20 MG/1 IN THE EVENING
     Dates: start: 20050322
  10. LANTUS [Concomitant]
  11. ATENOLOL [Concomitant]
  12. ZOCOR [Concomitant]
  13. SYNTHROID [Concomitant]
  14. TOFRANIL (IMPRAMINE HYDROCHLORIDE) [Concomitant]
  15. PULMICORT [Concomitant]
  16. ACTONEL [Concomitant]
  17. VITAMIN CAP [Concomitant]
  18. VITAMIN E [Concomitant]

REACTIONS (15)
  - ANAEMIA [None]
  - BLOOD GLUCOSE DECREASED [None]
  - BLOOD GLUCOSE INCREASED [None]
  - CHRONIC OBSTRUCTIVE PULMONARY DISEASE [None]
  - DIABETES MELLITUS INSULIN-DEPENDENT [None]
  - FATIGUE [None]
  - FEELING JITTERY [None]
  - INSOMNIA [None]
  - NEUROPATHY [None]
  - OSTEOPOROSIS [None]
  - PHARMACEUTICAL PRODUCT COMPLAINT [None]
  - RENAL FAILURE CHRONIC [None]
  - SYNCOPE [None]
  - VASCULAR BYPASS GRAFT [None]
  - WEIGHT DECREASED [None]
